FAERS Safety Report 8810631 (Version 1)
Quarter: 2012Q4

REPORT INFORMATION
  Report Type: Spontaneous
  Country: US (occurrence: None)
  Receive Date: 20120924
  Receipt Date: 20120924
  Transmission Date: 20130627
  Serious: Yes (Other)
  Sender: FDA-Public Use
  Company Number: None

PATIENT
  Age: 90 Year
  Sex: Female
  Weight: 65.5 kg

DRUGS (1)
  1. VESICARE [Suspect]
     Indication: STRESS INCONTINENCE
     Route: 048
     Dates: start: 20120731, end: 20120912

REACTIONS (1)
  - Vision blurred [None]
